FAERS Safety Report 12461419 (Version 1)
Quarter: 2016Q2

REPORT INFORMATION
  Report Type: Spontaneous
  Country: US (occurrence: US)
  Receive Date: 20160613
  Receipt Date: 20160613
  Transmission Date: 20160815
  Serious: Yes (Other)
  Sender: FDA-Public Use
  Company Number: US-BAYER-2016-114722

PATIENT
  Sex: Female

DRUGS (1)
  1. SKYLA [Suspect]
     Active Substance: LEVONORGESTREL
     Dosage: 13.5 MCG/24HR, CONT
     Route: 015

REACTIONS (1)
  - Genital haemorrhage [Not Recovered/Not Resolved]
